FAERS Safety Report 4697542-0 (Version None)
Quarter: 2005Q2

REPORT INFORMATION
  Report Type: 
  Country: None (occurrence: None)
  Receive Date: 20050621
  Receipt Date: 20050608
  Transmission Date: 20051028
  Serious: Yes (Hospitalization, Other)
  Sender: FDA-Public Use
  Company Number: USA050495834

PATIENT
  Sex: Female
  Weight: 57 kg

DRUGS (6)
  1. STRATTERA [Suspect]
     Indication: SCHIZOPHRENIA, PARANOID TYPE
     Dosage: 40 MG/2 DAY
     Dates: start: 20050228, end: 20050515
  2. KLONOPIN [Concomitant]
  3. SEROQUEL [Concomitant]
  4. LEXAPRO [Concomitant]
  5. GEODON [Concomitant]
  6. TRILEPTAL [Concomitant]

REACTIONS (4)
  - AGITATION [None]
  - ANGER [None]
  - INTENTIONAL SELF-INJURY [None]
  - THERMAL BURN [None]
